FAERS Safety Report 16475201 (Version 1)
Quarter: 2019Q2

REPORT INFORMATION
  Report Type: Spontaneous
  Country: US (occurrence: US)
  Receive Date: 20190625
  Receipt Date: 20190625
  Transmission Date: 20190711
  Serious: No
  Sender: FDA-Public Use
  Company Number: US-SA-2019SA165959

PATIENT
  Age: 75 Year
  Sex: Female

DRUGS (6)
  1. AMBIEN [Suspect]
     Active Substance: ZOLPIDEM TARTRATE
     Indication: SLEEP DISORDER
     Dosage: UNK UNK, UNK
     Route: 065
  2. XANAX [Concomitant]
     Active Substance: ALPRAZOLAM
     Dosage: 0.5 MG, QD
  3. ACETAMINOPHEN. [Concomitant]
     Active Substance: ACETAMINOPHEN
     Indication: PAIN
     Dosage: 500 MG, 4 A DAY, 2 IN THE MORNING AND 2 AT NIGHT, 1000 EACH TIME
  4. MELATONIN [Concomitant]
     Active Substance: MELATONIN
     Dosage: 5 MG GUMMIES, TAKES 2 AT NIGHT
  5. OXYCODONE [Concomitant]
     Active Substance: OXYCODONE
     Indication: BACK PAIN
     Dosage: 10/325 MG, TAKES 6 A DAY AS PRESCRIBED
  6. NAPROXEN. [Concomitant]
     Active Substance: NAPROXEN
     Indication: PAIN
     Dosage: 250 MG 4 A DAY, 2 PILLS IN THE MORNING AND 2 AT NIGHT

REACTIONS (2)
  - Fall [Unknown]
  - Somnambulism [Unknown]
